FAERS Safety Report 9329884 (Version 1)
Quarter: 2013Q2

REPORT INFORMATION
  Report Type: Spontaneous
  Country: CO (occurrence: CO)
  Receive Date: 20130604
  Receipt Date: 20130604
  Transmission Date: 20140414
  Serious: Yes (Death, Hospitalization)
  Sender: FDA-Public Use
  Company Number: CO-ASTRAZENECA-2013SE39863

PATIENT
  Age: 4 Month
  Sex: Male
  Weight: 3.5 kg

DRUGS (1)
  1. SYNAGIS [Suspect]
     Indication: PREMATURE BABY
     Route: 030
     Dates: start: 20130401, end: 20130430

REACTIONS (3)
  - Respiratory distress [Fatal]
  - Pneumonia [Fatal]
  - Malnutrition [Fatal]
